FAERS Safety Report 15501182 (Version 1)
Quarter: 2018Q4

REPORT INFORMATION
  Report Type: Spontaneous
  Country: PT (occurrence: PT)
  Receive Date: 20181015
  Receipt Date: 20181015
  Transmission Date: 20190205
  Serious: Yes (Hospitalization)
  Sender: FDA-Public Use
  Company Number: PT-BAUSCH-BL-2018-027867

PATIENT
  Age: 74 Year
  Sex: Female

DRUGS (2)
  1. PREDNISOLONE. [Suspect]
     Active Substance: PREDNISOLONE
     Dosage: DOSE REDUCED
     Route: 065
  2. PREDNISOLONE. [Suspect]
     Active Substance: PREDNISOLONE
     Indication: NECROTISING MYOSITIS
     Route: 065

REACTIONS (7)
  - Steroid diabetes [Recovered/Resolved]
  - Back injury [Recovered/Resolved]
  - Hypertension [Recovered/Resolved]
  - Lipohypertrophy [Recovered/Resolved]
  - Oedema peripheral [Recovered/Resolved]
  - Intraocular pressure increased [Recovered/Resolved]
  - Trunk injury [Recovered/Resolved]
